FAERS Safety Report 5092342-4 (Version None)
Quarter: 2006Q3

REPORT INFORMATION
  Report Type: 
  Country: None (occurrence: None)
  Receive Date: 20060825
  Receipt Date: 20060809
  Transmission Date: 20061208
  Serious: Yes (Other)
  Sender: FDA-Public Use
  Company Number: US200607004543

PATIENT
  Age: 64 Year
  Sex: Female

DRUGS (6)
  1. CYMBALTA [Suspect]
     Indication: DEPRESSION
     Dosage: 30 MG, DAILY (1/D); SEE IMAGE
     Dates: start: 20060424, end: 20060701
  2. WELLBUTRIN [Concomitant]
  3. XANAX /USA/ (ALPRAZOLAM) [Concomitant]
  4. LISINOPRIL [Concomitant]
  5. MOBIC [Concomitant]
  6. DARVOCET-N 100 [Concomitant]

REACTIONS (4)
  - ALANINE AMINOTRANSFERASE INCREASED [None]
  - ASPARTATE AMINOTRANSFERASE INCREASED [None]
  - BLOOD ALKALINE PHOSPHATASE INCREASED [None]
  - HYPERTENSION [None]
